FAERS Safety Report 8966648 (Version 1)
Quarter: 2012Q4

REPORT INFORMATION
  Report Type: 
  Country: JP (occurrence: JP)
  Receive Date: 20121214
  Receipt Date: 20121214
  Transmission Date: 20130627
  Serious: Yes (Hospitalization)
  Sender: FDA-Public Use
  Company Number: JP-ELI_LILLY_AND_COMPANY-JP201208006161

PATIENT
  Age: 65 Year
  Sex: Female

DRUGS (3)
  1. FORTEO [Suspect]
     Dosage: UNK
     Route: 058
     Dates: start: 20120803
  2. FORTEO [Suspect]
     Dosage: UNK
     Route: 058
  3. FORTEO [Suspect]
     Dosage: UNK
     Route: 058

REACTIONS (6)
  - Fracture [Unknown]
  - Injection site bruising [Unknown]
  - Insomnia [Recovered/Resolved]
  - Bone pain [Unknown]
  - Palpitations [Unknown]
  - Arthralgia [Recovered/Resolved]
